FAERS Safety Report 8577095-7 (Version None)
Quarter: 2012Q3

REPORT INFORMATION
  Report Type: 
  Country: None (occurrence: None)
  Receive Date: 20120807
  Receipt Date: 20120731
  Transmission Date: 20120928
  Serious: Yes (Hospitalization)
  Sender: FDA-Public Use
  Company Number: AU-B.I. PHARMACEUTICALS,INC./RIDGEFIELD-2012-AU-01327AU

PATIENT
  Age: 77 Year
  Sex: Male

DRUGS (5)
  1. DIGOXIN [Concomitant]
     Dosage: 62.5 MCG
  2. PREDNISONE TAB [Concomitant]
     Dosage: 5 MG
  3. PRADAXA [Suspect]
     Indication: ATRIAL FIBRILLATION
     Dosage: 220 MG
  4. RAMIPRIL [Concomitant]
     Dosage: 5 MG
  5. LIPITOR [Concomitant]
     Dosage: 80 MCG

REACTIONS (1)
  - CEREBROVASCULAR ACCIDENT [None]
